FAERS Safety Report 7775105-8 (Version None)
Quarter: 2011Q3

REPORT INFORMATION
  Report Type: 
  Country: None (occurrence: None)
  Receive Date: 20110923
  Receipt Date: 20110913
  Transmission Date: 20111222
  Serious: Yes (Death, Hospitalization, Other)
  Sender: FDA-Public Use
  Company Number: CO-JNJFOC-20090707359

PATIENT
  Age: 47 Year
  Sex: Male

DRUGS (2)
  1. REMICADE [Suspect]
     Indication: COLITIS ULCERATIVE
     Dosage: 3 DOSES OF 5MG/KG AT 0,2 AND 6 WEEKS.
     Route: 042
  2. AZATHIOPRINE [Concomitant]
     Route: 065

REACTIONS (2)
  - PYODERMA GANGRENOSUM [None]
  - SEPSIS [None]
